FAERS Safety Report 25081919 (Version 1)
Quarter: 2025Q1

REPORT INFORMATION
  Report Type: Spontaneous
  Country: CA (occurrence: CA)
  Receive Date: 20250317
  Receipt Date: 20250317
  Transmission Date: 20250409
  Serious: Yes (Hospitalization, Other)
  Sender: TEVA
  Company Number: CA-TEVA-VS-3310270

PATIENT
  Age: 52 Year
  Sex: Female

DRUGS (2)
  1. QUETIAPINE FUMARATE [Suspect]
     Active Substance: QUETIAPINE FUMARATE
     Indication: Psychotic disorder
     Route: 048
  2. ACETAMINOPHEN [Concomitant]
     Active Substance: ACETAMINOPHEN
     Indication: Product used for unknown indication
     Route: 065

REACTIONS (8)
  - Pneumonia [Unknown]
  - Vomiting [Unknown]
  - Off label use [Unknown]
  - Pain in extremity [Unknown]
  - Hypomania [Unknown]
  - Nausea [Unknown]
  - Cholelithiasis [Unknown]
  - Schizophrenia [Unknown]
